FAERS Safety Report 24226803 (Version 1)
Quarter: 2024Q3

REPORT INFORMATION
  Report Type: Report from Study
  Country: US (occurrence: None)
  Receive Date: 20240820
  Receipt Date: 20240820
  Transmission Date: 20241017
  Serious: Yes (Hospitalization)
  Sender: ASTRAZENECA
  Company Number: 2022A280261

PATIENT
  Age: 26981 Day
  Sex: Female
  Weight: 52.2 kg

DRUGS (1)
  1. TAGRISSO [Suspect]
     Active Substance: OSIMERTINIB
     Indication: Lung neoplasm malignant
     Route: 048
     Dates: start: 20220721

REACTIONS (7)
  - Pyrexia [Recovering/Resolving]
  - Palpitations [Recovering/Resolving]
  - Feeling abnormal [Recovering/Resolving]
  - Dyspnoea [Recovering/Resolving]
  - Myocardial necrosis marker increased [Recovering/Resolving]
  - Lethargy [Unknown]
  - Constipation [Unknown]

NARRATIVE: CASE EVENT DATE: 20220731
